FAERS Safety Report 5657924-7 (Version None)
Quarter: 2008Q1

REPORT INFORMATION
  Report Type: 
  Country: None (occurrence: None)
  Receive Date: 20080310
  Receipt Date: 20080306
  Transmission Date: 20080703
  Serious: Yes (Death, Other)
  Sender: FDA-Public Use
  Company Number: PHHY2008JP02285

PATIENT
  Age: 56 Year
  Sex: Male

DRUGS (8)
  1. FLUDARABINE [Concomitant]
     Dosage: 120 MG/M2
  2. IRRADIATION [Concomitant]
     Dosage: 4 GY
  3. METHOTREXATE [Suspect]
     Indication: BONE MARROW TRANSPLANT
     Dosage: SHORT-TERM
  4. ENDOXAN [Concomitant]
     Indication: BONE MARROW TRANSPLANT
     Dosage: 2000MG/M2
  5. FLUOROURACIL [Concomitant]
     Indication: BONE MARROW TRANSPLANT
     Dosage: 120MG/M2
  6. GRAN [Concomitant]
     Indication: BONE MARROW TRANSPLANT
  7. CICLOSPORIN [Suspect]
     Indication: BONE MARROW TRANSPLANT
     Route: 065
  8. NEUPOGEN [Suspect]

REACTIONS (11)
  - BLOOD STEM CELL TRANSPLANT FAILURE [None]
  - BONE MARROW FAILURE [None]
  - CONVULSION [None]
  - CSF VIRUS IDENTIFIED [None]
  - ENCEPHALITIS HERPES [None]
  - ENGRAFTMENT SYNDROME [None]
  - GRAFT VERSUS HOST DISEASE [None]
  - HUMAN HERPESVIRUS 6 INFECTION [None]
  - MEMORY IMPAIRMENT [None]
  - PLEURAL EFFUSION [None]
  - RASH [None]
